FAERS Safety Report 9474485 (Version 1)
Quarter: 2013Q3

REPORT INFORMATION
  Report Type: Spontaneous
  Country: AU (occurrence: AU)
  Receive Date: 20130823
  Receipt Date: 20130823
  Transmission Date: 20140515
  Serious: Yes (Hospitalization)
  Sender: FDA-Public Use
  Company Number: AU-AMGEN-AUSSP2013059451

PATIENT
  Age: 46 Year
  Sex: Male

DRUGS (1)
  1. ENBREL [Suspect]
     Indication: ANKYLOSING SPONDYLITIS
     Dosage: UNK, WEEKLY
     Route: 065
     Dates: start: 20130816

REACTIONS (2)
  - Musculoskeletal pain [Recovered/Resolved]
  - Musculoskeletal stiffness [Recovered/Resolved]
